FAERS Safety Report 8113925-0 (Version None)
Quarter: 2012Q1

REPORT INFORMATION
  Report Type: 
  Country: None (occurrence: None)
  Receive Date: 20120203
  Receipt Date: 20120201
  Transmission Date: 20120608
  Serious: Yes (Hospitalization, Other)
  Sender: FDA-Public Use
  Company Number: IT-ROCHE-741874

PATIENT
  Sex: Female
  Weight: 31 kg

DRUGS (6)
  1. ACETAMINOPHEN [Concomitant]
     Dates: start: 20110413, end: 20110608
  2. TOPAMAX [Concomitant]
     Indication: HEADACHE
     Route: 048
     Dates: start: 20110303, end: 20110331
  3. AMITRIPTYLINE HCL [Concomitant]
     Indication: HEADACHE
     Route: 048
     Dates: start: 20110331
  4. ACTEMRA [Suspect]
     Route: 042
  5. ACTEMRA [Suspect]
     Indication: CASTLEMAN'S DISEASE
     Route: 042
     Dates: start: 20100930, end: 20110302
  6. ACETAMINOPHEN [Concomitant]
     Indication: HEADACHE
     Dosage: ROUTE: ENDORETTAL
     Dates: start: 20110303, end: 20110413

REACTIONS (3)
  - PACHYMENINGITIS [None]
  - HEADACHE [None]
  - MIGRAINE [None]
